FAERS Safety Report 8238263-7 (Version None)
Quarter: 2012Q1

REPORT INFORMATION
  Report Type: 
  Country: None (occurrence: None)
  Receive Date: 20120327
  Receipt Date: 20120319
  Transmission Date: 20120608
  Serious: Yes (Hospitalization)
  Sender: FDA-Public Use
  Company Number: JP-JNJFOC-20120312128

PATIENT
  Age: 60 Year
  Sex: Female

DRUGS (2)
  1. DORIPENEM MONOHYDRATE [Suspect]
     Indication: INFECTION
     Route: 041
     Dates: start: 20120307, end: 20120307
  2. PROGRAF [Suspect]
     Indication: INFECTION
     Route: 065
     Dates: start: 20120307

REACTIONS (1)
  - CONVULSION [None]
